FAERS Safety Report 19751025 (Version 1)
Quarter: 2021Q3

REPORT INFORMATION
  Report Type: Report from Study
  Country: IT (occurrence: IT)
  Receive Date: 20210826
  Receipt Date: 20210826
  Transmission Date: 20211014
  Serious: Yes (Death)
  Sender: FDA-Public Use
  Company Number: IT-TEVA-2021-IT-1943769

PATIENT
  Age: 84 Year
  Sex: Female

DRUGS (3)
  1. HALCION [Concomitant]
     Active Substance: TRIAZOLAM
     Dosage: 250 MCG
     Route: 048
  2. RYTMONORM [Concomitant]
     Active Substance: PROPAFENONE
     Dosage: 425 MG
     Route: 048
  3. TICLOPIDINE [Suspect]
     Active Substance: TICLOPIDINE
     Indication: ANTIPLATELET THERAPY
     Dosage: 250 MG
     Route: 048

REACTIONS (2)
  - Subdural haematoma [Fatal]
  - Headache [Fatal]

NARRATIVE: CASE EVENT DATE: 20210623
